FAERS Safety Report 9098081 (Version 2)
Quarter: 2016Q4

REPORT INFORMATION
  Report Type: Report from Study
  Country: FR (occurrence: FR)
  Receive Date: 20130212
  Receipt Date: 20161122
  Transmission Date: 20170207
  Serious: Yes (Hospitalization)
  Sender: FDA-Public Use
  Company Number: FR-ROCHE-1189384

PATIENT
  Age: 68 Year
  Sex: Male

DRUGS (47)
  1. TOCILIZUMAB [Suspect]
     Active Substance: TOCILIZUMAB
     Route: 042
     Dates: start: 20110810
  2. TOCILIZUMAB [Suspect]
     Active Substance: TOCILIZUMAB
     Route: 042
     Dates: start: 20120522
  3. TOCILIZUMAB [Suspect]
     Active Substance: TOCILIZUMAB
     Dosage: ROACTEMRA WAS TEMPORARY DISCONTINUED (RESUMPTION ON 23/AUG/2013)
     Route: 042
     Dates: start: 20131115
  4. TOCILIZUMAB [Suspect]
     Active Substance: TOCILIZUMAB
     Route: 042
     Dates: start: 20131213
  5. TOCILIZUMAB [Suspect]
     Active Substance: TOCILIZUMAB
     Route: 042
     Dates: start: 20140212
  6. PLAQUENIL [Concomitant]
     Active Substance: HYDROXYCHLOROQUINE SULFATE
     Indication: RHEUMATOID ARTHRITIS
  7. CORTANCYL [Concomitant]
     Active Substance: PREDNISONE
     Indication: RHEUMATOID ARTHRITIS
     Route: 065
     Dates: start: 20110810
  8. HYDROCORTISONE. [Concomitant]
     Active Substance: HYDROCORTISONE
     Route: 065
  9. ARCOXIA [Concomitant]
     Active Substance: ETORICOXIB
     Route: 065
  10. TOCILIZUMAB [Suspect]
     Active Substance: TOCILIZUMAB
     Route: 042
     Dates: start: 20120719
  11. TOCILIZUMAB [Suspect]
     Active Substance: TOCILIZUMAB
     Route: 042
     Dates: start: 20121228
  12. TOCILIZUMAB [Suspect]
     Active Substance: TOCILIZUMAB
     Route: 042
     Dates: start: 20130125
  13. TOCILIZUMAB [Suspect]
     Active Substance: TOCILIZUMAB
     Route: 042
     Dates: start: 20130218
  14. TOCILIZUMAB [Suspect]
     Active Substance: TOCILIZUMAB
     Route: 042
     Dates: start: 20130412
  15. TOCILIZUMAB [Suspect]
     Active Substance: TOCILIZUMAB
     Route: 042
     Dates: start: 20130515
  16. TOCILIZUMAB [Suspect]
     Active Substance: TOCILIZUMAB
     Route: 042
     Dates: start: 20140312
  17. CORTANCYL [Concomitant]
     Active Substance: PREDNISONE
     Route: 065
     Dates: start: 20111121
  18. TOCILIZUMAB [Suspect]
     Active Substance: TOCILIZUMAB
     Indication: RHEUMATOID ARTHRITIS
     Dosage: LAST DOSE PRIOR TO SAE: 28/DEC/2011
     Route: 042
     Dates: start: 20110517
  19. TOCILIZUMAB [Suspect]
     Active Substance: TOCILIZUMAB
     Route: 042
     Dates: start: 20111021
  20. TOCILIZUMAB [Suspect]
     Active Substance: TOCILIZUMAB
     Route: 042
     Dates: start: 20120127
  21. TOCILIZUMAB [Suspect]
     Active Substance: TOCILIZUMAB
     Route: 042
     Dates: start: 20120224
  22. TOCILIZUMAB [Suspect]
     Active Substance: TOCILIZUMAB
     Route: 042
     Dates: start: 20121030
  23. TOCILIZUMAB [Suspect]
     Active Substance: TOCILIZUMAB
     Route: 042
     Dates: start: 20121129
  24. TOCILIZUMAB [Suspect]
     Active Substance: TOCILIZUMAB
     Route: 042
     Dates: start: 20110713
  25. TOCILIZUMAB [Suspect]
     Active Substance: TOCILIZUMAB
     Route: 042
     Dates: start: 20111228
  26. TOCILIZUMAB [Suspect]
     Active Substance: TOCILIZUMAB
     Route: 042
     Dates: start: 20120425
  27. TOCILIZUMAB [Suspect]
     Active Substance: TOCILIZUMAB
     Route: 042
     Dates: start: 20120620
  28. TOCILIZUMAB [Suspect]
     Active Substance: TOCILIZUMAB
     Route: 042
     Dates: start: 20130315
  29. TOCILIZUMAB [Suspect]
     Active Substance: TOCILIZUMAB
     Route: 042
     Dates: start: 20130918
  30. TOCILIZUMAB [Suspect]
     Active Substance: TOCILIZUMAB
     Route: 042
     Dates: start: 20131016
  31. PROZAC [Concomitant]
     Active Substance: FLUOXETINE HYDROCHLORIDE
     Dosage: 1 DOSAGE FORM (DF) DAILY
     Route: 065
  32. HYDROCORTISONE. [Concomitant]
     Active Substance: HYDROCORTISONE
     Route: 065
  33. TOCILIZUMAB [Suspect]
     Active Substance: TOCILIZUMAB
     Route: 042
     Dates: start: 20140409
  34. TOCILIZUMAB [Suspect]
     Active Substance: TOCILIZUMAB
     Route: 042
     Dates: start: 20110922
  35. TOCILIZUMAB [Suspect]
     Active Substance: TOCILIZUMAB
     Route: 042
     Dates: start: 20120906
  36. TOCILIZUMAB [Suspect]
     Active Substance: TOCILIZUMAB
     Route: 042
     Dates: start: 20140115
  37. METHOTREXATE. [Concomitant]
     Active Substance: METHOTREXATE
     Indication: RHEUMATOID ARTHRITIS
     Route: 065
     Dates: start: 20120522
  38. CORTANCYL [Concomitant]
     Active Substance: PREDNISONE
     Route: 065
     Dates: start: 20120522
  39. TOCILIZUMAB [Suspect]
     Active Substance: TOCILIZUMAB
     Route: 042
     Dates: start: 20110615
  40. TOCILIZUMAB [Suspect]
     Active Substance: TOCILIZUMAB
     Route: 042
     Dates: start: 20121005
  41. TOCILIZUMAB [Suspect]
     Active Substance: TOCILIZUMAB
     Route: 042
     Dates: start: 20130605
  42. TOCILIZUMAB [Suspect]
     Active Substance: TOCILIZUMAB
     Route: 042
     Dates: start: 20130823
  43. SKENAN [Concomitant]
     Active Substance: MORPHINE SULFATE
     Route: 065
     Dates: start: 20120522
  44. FORLAX [Concomitant]
     Active Substance: POLYETHYLENE GLYCOL 4000
     Route: 065
  45. MOPRAL [Concomitant]
     Active Substance: OMEPRAZOLE SODIUM
     Route: 065
  46. TOCILIZUMAB [Suspect]
     Active Substance: TOCILIZUMAB
     Route: 042
     Dates: start: 20111121
  47. IMOVANE [Concomitant]
     Active Substance: ZOPICLONE

REACTIONS (12)
  - Wound [Recovered/Resolved]
  - Ocular hyperaemia [Recovered/Resolved]
  - Osteoarthritis [Recovered/Resolved]
  - Stress fracture [Recovered/Resolved]
  - Rhinorrhoea [Recovered/Resolved]
  - Fall [Unknown]
  - Sinusitis [Recovered/Resolved]
  - Eye infection [Recovered/Resolved]
  - Staphylococcal infection [Recovered/Resolved]
  - Thrombocytopenia [Recovered/Resolved]
  - Tooth extraction [Recovered/Resolved]
  - Purulent discharge [Recovered/Resolved]

NARRATIVE: CASE EVENT DATE: 201106
